FAERS Safety Report 9677807 (Version 2)
Quarter: 2014Q1

REPORT INFORMATION
  Report Type: Spontaneous
  Country: DK (occurrence: FR)
  Receive Date: 20131108
  Receipt Date: 20140228
  Transmission Date: 20141002
  Serious: Yes (Other)
  Sender: FDA-Public Use
  Company Number: FR-FRI-1000050878

PATIENT
  Sex: Female

DRUGS (5)
  1. ESCITALOPRAM [Suspect]
     Dosage: 20 MG
     Dates: start: 2012
  2. ABILIFY [Suspect]
     Dosage: 10 MG
     Dates: start: 2012
  3. SERESTA [Suspect]
     Dosage: 50 MG
     Dates: start: 2012
  4. TERCIAN [Suspect]
     Dosage: 12.5 MG
     Dates: start: 2012
  5. FOLIC ACID [Concomitant]

REACTIONS (2)
  - Gestational diabetes [Unknown]
  - Pregnancy [Recovered/Resolved]
